FAERS Safety Report 24724283 (Version 1)
Quarter: 2024Q4

REPORT INFORMATION
  Report Type: Spontaneous
  Country: TZ (occurrence: TZ)
  Receive Date: 20241212
  Receipt Date: 20241212
  Transmission Date: 20250115
  Serious: Yes (Death, Hospitalization)
  Sender: STRIDES
  Company Number: TZ-STRIDES ARCOLAB LIMITED-2024SP016376

PATIENT
  Age: 8 Year
  Sex: Female
  Weight: 25 kg

DRUGS (9)
  1. ETOPOSIDE [Suspect]
     Active Substance: ETOPOSIDE
     Indication: Ovarian dysgerminoma stage unspecified
     Dosage: UNK, CYCLICAL, RECEIVED 2 CYCLES, EACH CYCLE OF 3 DAYS AND A 21 DAYS INTERVAL BETWEEN CYCLES
     Route: 065
  2. ETOPOSIDE [Suspect]
     Active Substance: ETOPOSIDE
     Indication: Metastases to lung
  3. ETOPOSIDE [Suspect]
     Active Substance: ETOPOSIDE
     Indication: Lymphangiosis carcinomatosa
  4. CARBOPLATIN [Suspect]
     Active Substance: CARBOPLATIN
     Indication: Ovarian dysgerminoma stage unspecified
     Dosage: UNK, CYCLICAL, RECEIVED 2 CYCLES, EACH CYCLE OF 3 DAYS AND A 21 DAYS INTERVAL BETWEEN CYCLES
     Route: 065
  5. CARBOPLATIN [Suspect]
     Active Substance: CARBOPLATIN
     Indication: Metastases to lung
  6. CARBOPLATIN [Suspect]
     Active Substance: CARBOPLATIN
     Indication: Lymphangiosis carcinomatosa
  7. BLEOMYCIN [Suspect]
     Active Substance: BLEOMYCIN SULFATE
     Indication: Ovarian dysgerminoma stage unspecified
     Dosage: UNK, CYCLICAL, RECEIVED 2 CYCLES, EACH CYCLE OF 3 DAYS AND A 21 DAYS INTERVAL BETWEEN CYCLES
     Route: 065
  8. BLEOMYCIN [Suspect]
     Active Substance: BLEOMYCIN SULFATE
     Indication: Metastases to lung
  9. BLEOMYCIN [Suspect]
     Active Substance: BLEOMYCIN SULFATE
     Indication: Lymphangiosis carcinomatosa

REACTIONS (5)
  - Condition aggravated [Fatal]
  - Pneumonia [Fatal]
  - Drug ineffective for unapproved indication [Fatal]
  - Pseudomonas infection [Not Recovered/Not Resolved]
  - Klebsiella infection [Not Recovered/Not Resolved]
